FAERS Safety Report 11101322 (Version 1)
Quarter: 2015Q2

REPORT INFORMATION
  Report Type: Spontaneous
  Country: US (occurrence: US)
  Receive Date: 20150508
  Receipt Date: 20150508
  Transmission Date: 20150821
  Serious: No
  Sender: FDA-Public Use
  Company Number: US-PFIZER INC-2015153760

PATIENT
  Age: 49 Year
  Sex: Female
  Weight: 118 kg

DRUGS (1)
  1. GENOTROPIN MQ [Suspect]
     Active Substance: SOMATROPIN
     Indication: HYPOPITUITARISM
     Dosage: 0.8 MG, DAILY
     Route: 058
     Dates: start: 20150331

REACTIONS (1)
  - Weight increased [Unknown]
